FAERS Safety Report 14963355 (Version 2)
Quarter: 2018Q2

REPORT INFORMATION
  Report Type: Spontaneous
  Country: US (occurrence: US)
  Receive Date: 20180601
  Receipt Date: 20180613
  Transmission Date: 20180711
  Serious: Yes (Hospitalization)
  Sender: FDA-Public Use
  Company Number: US-CELGENEUS-USA-20180509856

PATIENT
  Age: 44 Year
  Sex: Female

DRUGS (2)
  1. GRANIX [Concomitant]
     Active Substance: TBO-FILGRASTIM
     Indication: INFECTION
     Dosage: 480 MICROGRAM
     Route: 065
     Dates: start: 20180525
  2. REVLIMID [Suspect]
     Active Substance: LENALIDOMIDE
     Indication: PLASMA CELL MYELOMA
     Dosage: 25 MILLIGRAM
     Route: 048
     Dates: start: 20180504, end: 20180524

REACTIONS (1)
  - Pneumonia [Recovered/Resolved]

NARRATIVE: CASE EVENT DATE: 20180522
